FAERS Safety Report 16942657 (Version 3)
Quarter: 2020Q2

REPORT INFORMATION
  Report Type: Spontaneous
  Country: DE (occurrence: DE)
  Receive Date: 20191021
  Receipt Date: 20200519
  Transmission Date: 20200713
  Serious: Yes (Hospitalization, Other)
  Sender: FDA-Public Use
  Company Number: DE-TAKEDA-2019TUS032746

PATIENT
  Age: 33 Year
  Sex: Female
  Weight: 62 kg

DRUGS (9)
  1. DECORTIN [Concomitant]
     Active Substance: PREDNISONE
     Indication: CROHN^S DISEASE
     Dosage: 5 MILLIGRAM, QD
     Dates: start: 20181029
  2. FAMENITA [Concomitant]
     Active Substance: PROGESTERONE
     Indication: PREGNANCY
     Dosage: UNK UNK, BID
     Route: 067
  3. ENTYVIO [Suspect]
     Active Substance: VEDOLIZUMAB
     Indication: CROHN^S DISEASE
     Dosage: UNK
     Route: 065
     Dates: start: 201803, end: 201806
  4. ENTYVIO [Suspect]
     Active Substance: VEDOLIZUMAB
     Dosage: 300 MILLIGRAM
     Route: 065
     Dates: start: 20181015
  5. ADALIMUMAB [Concomitant]
     Active Substance: ADALIMUMAB
     Dosage: UNK
     Dates: start: 201712
  6. PREDNIHEXAL [Concomitant]
     Active Substance: PREDNISOLONE ACETATE
     Dosage: 5 MILLIGRAM, QD
  7. ENOXAPARIN [Concomitant]
     Active Substance: ENOXAPARIN
     Indication: THROMBOSIS PROPHYLAXIS
     Dosage: 40000 INTERNATIONAL UNIT, QD
     Dates: end: 20190629
  8. PROGYNOVA                          /00045402/ [Concomitant]
     Active Substance: ESTRADIOL VALERATE
     Indication: PREGNANCY
     Dosage: UNK, QD
     Route: 048
  9. SYNARELA [Concomitant]
     Active Substance: NAFARELIN ACETATE
     Dosage: UNK UNK, BID
     Dates: start: 20190323, end: 20190401

REACTIONS (5)
  - Pre-eclampsia [Recovered/Resolved]
  - Haemorrhage in pregnancy [Unknown]
  - Pain [Unknown]
  - Twin pregnancy [Recovered/Resolved]
  - Fatigue [Unknown]

NARRATIVE: CASE EVENT DATE: 201903
